FAERS Safety Report 9237888 (Version 1)
Quarter: 2013Q2

REPORT INFORMATION
  Report Type: Spontaneous
  Country: RU (occurrence: None)
  Receive Date: 20130415
  Receipt Date: 20130415
  Transmission Date: 20140414
  Serious: Yes (Other)
  Sender: FDA-Public Use
  Company Number: 2013-1469

PATIENT
  Age: 34 Year
  Sex: Female

DRUGS (3)
  1. DYSPORT (BOTLINUM TOXIN TYPE A) (BOTULINUM TOXIN TYPE A) [Suspect]
     Indication: SKIN WRINKLING
     Dosage: 40 UNITS (40 UNITS, 1 IN 1 CYCLE(S)), UNKNOWN
     Dates: start: 20130406, end: 20130406
  2. DYSPORT (BOTLINUM TOXIN TYPE A) (BOTULINUM TOXIN TYPE A) [Suspect]
     Indication: SKIN WRINKLING
     Dosage: 40 UNITS (40 UNITS, 1 IN 1 CYCLE(S)), UNKNOWN
     Dates: start: 20130406, end: 20130406
  3. DYSPORT (BOTLINUM TOXIN TYPE A) (BOTULINUM TOXIN TYPE A) [Suspect]
     Indication: OFF LABEL USE
     Dosage: 40 UNITS (40 UNITS, 1 IN 1 CYCLE(S)), UNKNOWN
     Dates: start: 20130406, end: 20130406

REACTIONS (2)
  - Loss of consciousness [None]
  - Convulsion [None]
